FAERS Safety Report 7490488-4 (Version None)
Quarter: 2011Q2

REPORT INFORMATION
  Report Type: 
  Country: None (occurrence: None)
  Receive Date: 20110517
  Receipt Date: 20110517
  Transmission Date: 20111010
  Serious: Yes (Other)
  Sender: FDA-Public Use
  Company Number: None

PATIENT
  Age: 38 Year
  Sex: Female
  Weight: 53.5244 kg

DRUGS (3)
  1. VITAMIN D [Concomitant]
  2. MULTI VITAMIN GUMMY BEARS [Concomitant]
  3. MACROBID [Suspect]
     Indication: URINARY TRACT INFECTION
     Dosage: 11 MG BID PO
     Route: 048
     Dates: start: 20110406, end: 20110411

REACTIONS (2)
  - RASH ERYTHEMATOUS [None]
  - NAUSEA [None]
